FAERS Safety Report 21360285 (Version 1)
Quarter: 2022Q3

REPORT INFORMATION
  Report Type: Spontaneous
  Country: IT (occurrence: IT)
  Receive Date: 20220921
  Receipt Date: 20220921
  Transmission Date: 20221026
  Serious: Yes (Other)
  Sender: FDA-Public Use
  Company Number: None

PATIENT
  Age: 47 Year
  Sex: Female
  Weight: 53 kg

DRUGS (2)
  1. MIRENA [Suspect]
     Active Substance: LEVONORGESTREL
     Indication: Contraception
     Dosage: 20?G/DAY
     Route: 015
     Dates: start: 20220701, end: 20220831
  2. ELOPRAM [CITALOPRAM HYDROBROMIDE] [Concomitant]
     Indication: Anxiety
     Route: 048

REACTIONS (6)
  - Depressed mood [Unknown]
  - Somnolence [Unknown]
  - Irritability [Unknown]
  - Suicidal ideation [Unknown]
  - Anxiety [Unknown]
  - Thinking abnormal [Unknown]

NARRATIVE: CASE EVENT DATE: 20220701
